FAERS Safety Report 9407573 (Version 1)
Quarter: 2013Q3

REPORT INFORMATION
  Report Type: Spontaneous
  Country: US (occurrence: None)
  Receive Date: 20130711
  Receipt Date: 20130711
  Transmission Date: 20140515
  Serious: Yes (Death)
  Sender: FDA-Public Use
  Company Number: SYM-2013-03887

PATIENT
  Age: 39 Year
  Sex: Female

DRUGS (2)
  1. WELLBUTRIN [Suspect]
     Indication: DEPRESSION
  2. ZYBAN [Suspect]
     Indication: DEPRESSION

REACTIONS (2)
  - Soft tissue necrosis [None]
  - Intentional drug misuse [None]
